FAERS Safety Report 8771887 (Version 3)
Quarter: 2013Q2

REPORT INFORMATION
  Report Type: Report from Study
  Country: JP (occurrence: JP)
  Receive Date: 20120906
  Receipt Date: 20130617
  Transmission Date: 20140414
  Serious: Yes (Other)
  Sender: FDA-Public Use
  Company Number: JP-VERTEX PHARMACEUTICAL INC.-2012-020641

PATIENT
  Age: 50 Year
  Sex: Male

DRUGS (17)
  1. VX-950 (TELAPREVIR) [Suspect]
     Indication: CHRONIC HEPATITIS C
     Dosage: 2250 MG, QD
     Route: 048
     Dates: start: 20120516, end: 20120808
  2. PEGINTRON [Suspect]
     Indication: CHRONIC HEPATITIS C
     Dosage: 1.43 ?G/KG, QW
     Route: 058
     Dates: start: 20120516
  3. PEGINTRON [Suspect]
     Dosage: 70 ?G, QD
     Route: 058
     Dates: start: 20120815
  4. PEGINTRON [Suspect]
     Dosage: 1.43 ?G/KG, QW
     Route: 058
     Dates: end: 20120822
  5. PEGINTRON [Suspect]
     Dosage: 1.00 ?G/KG, QW
     Route: 058
     Dates: start: 20120829, end: 20120905
  6. PEGINTRON [Suspect]
     Dosage: 0.57 ?G/KG, QW
     Route: 058
     Dates: start: 20120912, end: 20121009
  7. PEGINTRON [Suspect]
     Dosage: 0.72 ?G/KG, QW
     Route: 058
     Dates: start: 20121017, end: 20121024
  8. REBETOL [Suspect]
     Indication: CHRONIC HEPATITIS C
     Dosage: 800 MG, QD
     Route: 048
     Dates: start: 20120516, end: 20120530
  9. REBETOL [Suspect]
     Dosage: 600 MG, QD
     Route: 048
     Dates: start: 20120531, end: 20120612
  10. REBETOL [Suspect]
     Dosage: 200 MG, QD
     Route: 048
     Dates: start: 20120613, end: 20120925
  11. REBETOL [Suspect]
     Dosage: 400 MG, QD
     Route: 048
     Dates: start: 20120926, end: 20121016
  12. REBETOL [Suspect]
     Dosage: 600 MG, QD
     Route: 048
     Dates: start: 20121017, end: 20121023
  13. REBETOL [Suspect]
     Dosage: 800 MG, QD
     Route: 048
     Dates: start: 20121024, end: 20121030
  14. SOLDEM 1 [Concomitant]
     Dosage: 500 ML, QD
     Route: 042
     Dates: start: 20120801, end: 20120801
  15. URSO [Concomitant]
     Dosage: 600 MG, QD
     Route: 048
  16. NAUZELIN [Concomitant]
     Dosage: 30 MG, QD
     Route: 048
     Dates: start: 20120704, end: 20120905
  17. PARIET [Concomitant]
     Dosage: 10 MG, QD
     Route: 048
     Dates: start: 20120704, end: 20121009

REACTIONS (2)
  - White blood cell count decreased [Recovered/Resolved]
  - Neutrophil count decreased [Recovered/Resolved]
